FAERS Safety Report 10752689 (Version 2)
Quarter: 2015Q1

REPORT INFORMATION
  Report Type: Spontaneous
  Country: JP (occurrence: JP)
  Receive Date: 20150130
  Receipt Date: 20150225
  Transmission Date: 20150721
  Serious: Yes (Hospitalization)
  Sender: FDA-Public Use
  Company Number: JP-EISAI MEDICAL RESEARCH-EC-2015-003464

PATIENT
  Sex: Male

DRUGS (8)
  1. EXCEGRAN [Suspect]
     Active Substance: ZONISAMIDE
     Indication: FRONTAL LOBE EPILEPSY
     Route: 048
     Dates: end: 20090609
  2. RISPERDAL [Concomitant]
     Active Substance: RISPERIDONE
     Indication: POSTICTAL PSYCHOSIS
     Route: 048
     Dates: start: 20090609
  3. SODIUM VALPROATE [Concomitant]
     Active Substance: VALPROATE SODIUM
     Indication: FRONTAL LOBE EPILEPSY
     Dosage: 1000 MG DAILY
     Route: 048
  4. TEGRETOL [Concomitant]
     Active Substance: CARBAMAZEPINE
     Route: 048
     Dates: start: 20090623
  5. MYSTAN [Suspect]
     Active Substance: CLOBAZAM
     Route: 048
     Dates: start: 20090623
  6. TOPINA [Suspect]
     Active Substance: TOPIRAMATE
     Indication: EPILEPSY
     Route: 048
  7. TEGRETOL [Concomitant]
     Active Substance: CARBAMAZEPINE
     Route: 048
     Dates: start: 20090609, end: 20090622
  8. MYSTAN [Suspect]
     Active Substance: CLOBAZAM
     Indication: EPILEPSY
     Route: 048
     Dates: end: 20090622

REACTIONS (1)
  - Postictal psychosis [Recovered/Resolved]

NARRATIVE: CASE EVENT DATE: 2008
